FAERS Safety Report 14861980 (Version 1)
Quarter: 2020Q3

REPORT INFORMATION
  Report Type: Spontaneous
  Country: DE (occurrence: DE)
  Receive Date: 20180508
  Receipt Date: 20180508
  Transmission Date: 20201105
  Serious: Yes (Other)
  Sender: FDA-Public Use
  Company Number: DE-ROCHE-2118336

PATIENT
  Age: 63 Year
  Sex: Female

DRUGS (4)
  1. TAMOXIFEN [Suspect]
     Active Substance: TAMOXIFEN
     Indication: PRODUCT USED FOR UNKNOWN INDICATION
     Route: 048
     Dates: start: 2008, end: 2011
  2. IBANDRONIC ACID. [Suspect]
     Active Substance: IBANDRONIC ACID
     Indication: PALLIATIVE CARE
     Route: 065
     Dates: start: 201702
  3. LETROZOL [Suspect]
     Active Substance: LETROZOLE
     Indication: PALLIATIVE CARE
     Route: 065
     Dates: start: 201702
  4. IBRANCE [Suspect]
     Active Substance: PALBOCICLIB
     Indication: PALLIATIVE CARE
     Route: 048

REACTIONS (8)
  - Metastases to lung [Unknown]
  - Metastases to bone [Unknown]
  - Malignant neoplasm progression [Unknown]
  - Hypothyroidism [Unknown]
  - Pneumonia [Unknown]
  - Breast cancer recurrent [Unknown]
  - Metastases to lymph nodes [Unknown]
  - Haemangioma of liver [Unknown]

NARRATIVE: CASE EVENT DATE: 201701
